FAERS Safety Report 12491449 (Version 1)
Quarter: 2016Q2

REPORT INFORMATION
  Report Type: Spontaneous
  Country: IN (occurrence: IN)
  Receive Date: 20160623
  Receipt Date: 20160623
  Transmission Date: 20160815
  Serious: Yes (Other)
  Sender: FDA-Public Use
  Company Number: IN-SCIEGEN PHARMACEUTICALS INC-2016SCILIT00141

PATIENT
  Age: 65 Year
  Sex: Male

DRUGS (3)
  1. METFORMIN HYDROCHLORIDE TABLETS, USP [Suspect]
     Active Substance: METFORMIN HYDROCHLORIDE
     Indication: PRODUCT USED FOR UNKNOWN INDICATION
     Dosage: 1 G, UNK
     Route: 065
  2. PIOGLITAZONE. [Suspect]
     Active Substance: PIOGLITAZONE
     Indication: PRODUCT USED FOR UNKNOWN INDICATION
     Dosage: 30 MG, UNK
     Route: 065
  3. GLIMEPRIDE [Suspect]
     Active Substance: GLIMEPIRIDE
     Indication: PRODUCT USED FOR UNKNOWN INDICATION
     Dosage: 2 MG, UNK
     Route: 065

REACTIONS (10)
  - Cardiac failure [Recovering/Resolving]
  - Oedema peripheral [Recovered/Resolved]
  - Pulmonary oedema [Recovering/Resolving]
  - Pleural effusion [None]
  - Orthopnoea [Unknown]
  - Breath sounds abnormal [Recovered/Resolved]
  - Dyspnoea paroxysmal nocturnal [Unknown]
  - Hepatomegaly [Unknown]
  - Dyspnoea [Unknown]
  - Venous pressure jugular increased [Recovered/Resolved]
